FAERS Safety Report 13004290 (Version 1)
Quarter: 2016Q4

REPORT INFORMATION
  Report Type: Spontaneous
  Country: QA (occurrence: QA)
  Receive Date: 20161206
  Receipt Date: 20161206
  Transmission Date: 20170207
  Serious: Yes (Other)
  Sender: FDA-Public Use
  Company Number: QA-PAR PHARMACEUTICAL COMPANIES-2016SCPR016188

PATIENT

DRUGS (4)
  1. CAPTOPRIL. [Concomitant]
     Active Substance: CAPTOPRIL
     Indication: HYPERTENSION
     Dosage: UNK, UNKNOWN
     Route: 065
  2. CLOMIPHENE CITRATE. [Suspect]
     Active Substance: CLOMIPHENE CITRATE
     Indication: SPERM CONCENTRATION ABNORMAL
  3. CLOMIPHENE CITRATE. [Suspect]
     Active Substance: CLOMIPHENE CITRATE
     Indication: INFERTILITY
     Dosage: 50 MG, EVERY OTHER DAY
     Route: 048
  4. CLOMIPHENE CITRATE. [Suspect]
     Active Substance: CLOMIPHENE CITRATE
     Indication: SPERMATOZOA PROGRESSIVE MOTILITY ABNORMAL

REACTIONS (2)
  - Off label use [Unknown]
  - Intracranial venous sinus thrombosis [Recovered/Resolved]
